FAERS Safety Report 6128903-0 (Version None)
Quarter: 2009Q1

REPORT INFORMATION
  Report Type: 
  Country: None (occurrence: None)
  Receive Date: 20090320
  Receipt Date: 20090304
  Transmission Date: 20090719
  Serious: Yes (Other)
  Sender: FDA-Public Use
  Company Number: DSA_33316_2009

PATIENT
  Age: 47 Year
  Sex: Female
  Weight: 49.8957 kg

DRUGS (6)
  1. XENAZINE [Suspect]
     Indication: CHOREA
     Dosage: 6.25 MG QD ORAL
     Route: 048
     Dates: start: 20090212, end: 20090222
  2. LEXAPRO [Suspect]
     Indication: DRUG USE FOR UNKNOWN INDICATION
     Dosage: DF
  3. INVEGA [Concomitant]
  4. DEPAKOTE [Concomitant]
  5. DEPLIN [Concomitant]
  6. NAMENDA [Concomitant]

REACTIONS (7)
  - ANXIETY [None]
  - DISORIENTATION [None]
  - DRUG INTERACTION [None]
  - DYSPHAGIA [None]
  - DYSPNOEA [None]
  - FALL [None]
  - INSOMNIA [None]
